FAERS Safety Report 7544608-3 (Version None)
Quarter: 2011Q2

REPORT INFORMATION
  Report Type: 
  Country: None (occurrence: None)
  Receive Date: 20110614
  Receipt Date: 20110606
  Transmission Date: 20111010
  Serious: Yes (Hospitalization)
  Sender: FDA-Public Use
  Company Number: US-BIOGENIDEC-2011BI019947

PATIENT
  Age: 52 Year
  Sex: Female

DRUGS (4)
  1. AVONEX [Concomitant]
     Route: 030
     Dates: start: 20050624
  2. AVONEX [Concomitant]
     Indication: MULTIPLE SCLEROSIS
     Route: 030
     Dates: start: 20071101
  3. AVONEX [Concomitant]
     Route: 030
     Dates: start: 20001113
  4. TYSABRI [Suspect]
     Indication: MULTIPLE SCLEROSIS
     Route: 042
     Dates: start: 20071010

REACTIONS (1)
  - ARTHROSCOPIC SURGERY [None]
